FAERS Safety Report 8943299 (Version 2)
Quarter: 2013Q1

REPORT INFORMATION
  Report Type: Spontaneous
  Country: DZ (occurrence: DZ)
  Receive Date: 20121203
  Receipt Date: 20130104
  Transmission Date: 20140127
  Serious: Yes (Other)
  Sender: FDA-Public Use
  Company Number: DZ-PFIZER INC-2012301860

PATIENT
  Age: 45 Year
  Sex: Female

DRUGS (11)
  1. TAHOR [Suspect]
     Indication: PROPHYLAXIS
     Dosage: 80 MG, 1X/DAY
     Dates: start: 2012
  2. GLUCOPHAGE [Concomitant]
     Dosage: 850 MG, 2X/DAY
  3. AMAREL [Concomitant]
     Dosage: 41.5 UNK, 1X/DAY
  4. COAPROVEL [Concomitant]
     Dosage: 300 UNK, UNK
  5. ASPEGIC [Concomitant]
     Dosage: 100 UNK, UNK
  6. TRAMADOL [Concomitant]
     Dosage: 50 UNK, 3X/DAY
  7. LOMAC [Concomitant]
     Dosage: 2 DF, 2X/DAY
  8. PRAXILENE [Concomitant]
     Dosage: 200 UNK, UNK
  9. TORENTAL [Concomitant]
     Dosage: 400 UNK, UNK
  10. VORTEX [Concomitant]
     Dosage: 1 DF, 1X/DAY
  11. POROSIMAX [Concomitant]
     Dosage: 1 DF, WEEKLY

REACTIONS (3)
  - Headache [Recovered/Resolved]
  - Vomiting [Recovered/Resolved]
  - Asthenia [Recovered/Resolved]
